FAERS Safety Report 17127195 (Version 3)
Quarter: 2020Q1

REPORT INFORMATION
  Report Type: Report from Study
  Country: None (occurrence: US)
  Receive Date: 20191209
  Receipt Date: 20200128
  Transmission Date: 20200409
  Serious: Yes (Other)
  Sender: FDA-Public Use
  Company Number: US-ABBVIE-19K-163-3183021-00

PATIENT
  Age: 81 Year
  Sex: Female
  Weight: 70.37 kg

DRUGS (7)
  1. HUMIRA [Suspect]
     Active Substance: ADALIMUMAB
     Indication: CROHN^S DISEASE
     Dosage: CITRATE FREE
     Route: 058
     Dates: start: 20170127, end: 20190108
  2. BIOTIN [Concomitant]
     Active Substance: BIOTIN
     Indication: VITAMIN SUPPLEMENTATION
  3. VITAMIN B12 [Concomitant]
     Active Substance: CYANOCOBALAMIN
     Indication: VITAMIN SUPPLEMENTATION
  4. PANTOPRAZOLE [Concomitant]
     Active Substance: PANTOPRAZOLE
     Indication: GASTRIC DISORDER
  5. HUMIRA [Suspect]
     Active Substance: ADALIMUMAB
     Dosage: CITRATE FREE
     Route: 058
     Dates: start: 20190205
  6. VITAMIN D3 [Concomitant]
     Active Substance: CHOLECALCIFEROL
     Indication: VITAMIN SUPPLEMENTATION
  7. FOLIC ACID. [Concomitant]
     Active Substance: FOLIC ACID
     Indication: VITAMIN SUPPLEMENTATION

REACTIONS (4)
  - Breast cancer female [Recovered/Resolved]
  - Renal mass [Unknown]
  - Muscular weakness [Recovering/Resolving]
  - Ureteral disorder [Unknown]

NARRATIVE: CASE EVENT DATE: 201811
